FAERS Safety Report 6496842-1 (Version None)
Quarter: 2009Q4

REPORT INFORMATION
  Report Type: 
  Country: None (occurrence: None)
  Receive Date: 20091125
  Receipt Date: 20090417
  Transmission Date: 20100525
  Serious: Yes (Other)
  Sender: FDA-Public Use
  Company Number: 2009BH006323

PATIENT
  Age: 73 Year
  Sex: Female
  Weight: 62.5 kg

DRUGS (13)
  1. DIANEAL [Suspect]
     Indication: PERITONEAL DIALYSIS
     Dosage: EVERY DAY; IP
     Route: 033
     Dates: start: 20081030
  2. DIANEAL [Suspect]
     Indication: PERITONEAL DIALYSIS
     Dosage: EVERY DAY; IP
     Route: 033
     Dates: start: 20081030
  3. HEPARIN [Concomitant]
  4. MULTI-VITAMINS [Concomitant]
  5. VITAMIN C [Concomitant]
  6. CLONIDINE [Concomitant]
  7. RENAL SOFTGEL [Concomitant]
  8. SODIUM BICARBONATE [Concomitant]
  9. IRON PLUS [Concomitant]
  10. BISOPROLOL FUMARATE [Concomitant]
  11. ISOSORBIDE [Concomitant]
  12. NIFEDIPINE [Concomitant]
  13. LASIX [Concomitant]

REACTIONS (6)
  - BLOOD ALBUMIN DECREASED [None]
  - DISCOMFORT [None]
  - OEDEMA PERIPHERAL [None]
  - PERITONEAL DIALYSIS COMPLICATION [None]
  - PERITONITIS BACTERIAL [None]
  - PROCEDURAL PAIN [None]
